FAERS Safety Report 17941327 (Version 2)
Quarter: 2020Q2

REPORT INFORMATION
  Report Type: Spontaneous
  Country: US (occurrence: US)
  Receive Date: 20200625
  Receipt Date: 20200626
  Transmission Date: 20200714
  Serious: No
  Sender: FDA-Public Use
  Company Number: US-SA-2020SA159894

PATIENT

DRUGS (1)
  1. DUPIXENT [Suspect]
     Active Substance: DUPILUMAB
     Indication: NASAL POLYPS
     Dosage: 300 MG, QOW
     Route: 058
     Dates: start: 202005

REACTIONS (3)
  - Headache [Recovering/Resolving]
  - Eye pruritus [Recovered/Resolved]
  - Eye discharge [Recovered/Resolved]

NARRATIVE: CASE EVENT DATE: 2020
